FAERS Safety Report 6811364-3 (Version None)
Quarter: 2010Q2

REPORT INFORMATION
  Report Type: 
  Country: None (occurrence: None)
  Receive Date: 20100630
  Receipt Date: 20100113
  Transmission Date: 20101027
  Serious: No
  Sender: FDA-Public Use
  Company Number: US-AMGEN-KDL385795

PATIENT
  Sex: Female
  Weight: 81.7 kg

DRUGS (3)
  1. PROCRIT [Suspect]
     Indication: ANAEMIA
     Dates: start: 20100113
  2. PEGASYS [Concomitant]
  3. ANTIDEPRESSANTS [Concomitant]

REACTIONS (1)
  - INCORRECT ROUTE OF DRUG ADMINISTRATION [None]
